FAERS Safety Report 7377403-9 (Version None)
Quarter: 2011Q1

REPORT INFORMATION
  Report Type: 
  Country: None (occurrence: None)
  Receive Date: 20110328
  Receipt Date: 20110324
  Transmission Date: 20110831
  Serious: No
  Sender: FDA-Public Use
  Company Number: US-PFIZER INC-2011066709

PATIENT
  Sex: Female
  Weight: 51.247 kg

DRUGS (6)
  1. ALTACE [Concomitant]
     Indication: HYPERTENSION
     Dosage: 15 MG, 1X/DAY
  2. ZANTAC [Concomitant]
     Dosage: UNK
  3. LIPITOR [Suspect]
     Indication: BLOOD CHOLESTEROL INCREASED
     Dosage: 80 MG, 1X/DAY
     Route: 048
     Dates: start: 20100901
  4. ASPIRIN [Concomitant]
     Indication: CARDIAC DISORDER
     Dosage: 325 MG, 1X/DAY
  5. PLAVIX [Concomitant]
     Indication: CARDIAC DISORDER
     Dosage: 75 MG, 1X/DAY
  6. LIPITOR [Suspect]
     Dosage: 40 MG, 1X/DAY
     Dates: start: 20110322

REACTIONS (4)
  - WEIGHT DECREASED [None]
  - LOW DENSITY LIPOPROTEIN INCREASED [None]
  - INSOMNIA [None]
  - SEDATION [None]
